FAERS Safety Report 5608665-3 (Version None)
Quarter: 2008Q1

REPORT INFORMATION
  Report Type: 
  Country: None (occurrence: None)
  Receive Date: 20080131
  Receipt Date: 20080118
  Transmission Date: 20080703
  Serious: Yes (Other)
  Sender: FDA-Public Use
  Company Number: US-PFIZER INC-2007020348

PATIENT
  Sex: Female
  Weight: 92.1 kg

DRUGS (32)
  1. CHANTIX [Suspect]
     Indication: SMOKING CESSATION THERAPY
     Dates: start: 20070201, end: 20070401
  2. ALL OTHER THERAPEUTIC PRODUCTS [Suspect]
     Indication: CONSTIPATION
  3. FUROSEMIDE [Concomitant]
     Indication: HYPERTENSION
  4. OMEPRAZOLE [Concomitant]
  5. ALL OTHER THERAPEUTIC PRODUCTS [Concomitant]
  6. LEVOTHYROXINE SODIUM [Concomitant]
  7. CALCIUM COMPOUNDS [Concomitant]
  8. POTASSIUM CHLORIDE [Concomitant]
  9. VITAMIN CAP [Concomitant]
  10. MUCINEX [Concomitant]
  11. MONTELUKAST SODIUM [Concomitant]
     Indication: MULTIPLE ALLERGIES
  12. CLONAZEPAM [Concomitant]
  13. IPRATROPIUM BROMIDE [Concomitant]
     Route: 055
  14. ZANAFLEX [Concomitant]
  15. ALL OTHER THERAPEUTIC PRODUCTS [Concomitant]
  16. EPINEPHRINE [Concomitant]
  17. FLONASE [Concomitant]
  18. PROMETHAZINE [Concomitant]
  19. MORPHINE [Concomitant]
  20. DOCUSATE [Concomitant]
  21. DIAZEPAM [Concomitant]
  22. AMLODIPINE [Concomitant]
  23. HYDROXYZINE [Concomitant]
     Indication: MULTIPLE ALLERGIES
  24. MORPHINE SULFATE [Concomitant]
  25. SEROQUEL [Concomitant]
     Indication: SLEEP DISORDER
  26. AZMACORT [Concomitant]
  27. XOPENEX [Concomitant]
  28. CALCIUM GLUCONATE [Concomitant]
  29. CARBOHYDRATES [Concomitant]
  30. GEMFIBROZIL [Concomitant]
  31. BENADRYL [Concomitant]
  32. BENZOYL PEROXIDE [Concomitant]

REACTIONS (25)
  - ABDOMINAL DISTENSION [None]
  - ABNORMAL DREAMS [None]
  - ANOREXIA [None]
  - CHEST PAIN [None]
  - CONSTIPATION [None]
  - COUGH [None]
  - DIZZINESS [None]
  - DRY MOUTH [None]
  - FLATULENCE [None]
  - GINGIVAL BLEEDING [None]
  - GINGIVAL INFECTION [None]
  - GINGIVAL SWELLING [None]
  - HYPERTENSION [None]
  - INCREASED UPPER AIRWAY SECRETION [None]
  - INSOMNIA [None]
  - LOWER RESPIRATORY TRACT INFECTION [None]
  - NAUSEA [None]
  - NIGHTMARE [None]
  - ORAL PAIN [None]
  - RENAL PAIN [None]
  - STRESS [None]
  - THERAPY REGIMEN CHANGED [None]
  - TOOTH EXTRACTION [None]
  - VOMITING [None]
  - WEIGHT INCREASED [None]
